FAERS Safety Report 4381390-5 (Version None)
Quarter: 2004Q2

REPORT INFORMATION
  Report Type: 
  Country: None (occurrence: None)
  Receive Date: 20040617
  Receipt Date: 20040617
  Transmission Date: 20050107
  Serious: Yes (Other)
  Sender: FDA-Public Use
  Company Number: None

PATIENT
  Age: 37 Year
  Sex: Female

DRUGS (4)
  1. GAMMAR-P 10G BEHRING - AVENTIS [Suspect]
     Indication: ASTHENIA
     Dosage: 30G OVER 8 HOURS INTRAVENOUS
     Route: 042
     Dates: start: 20040212, end: 20040219
  2. GAMMAR-P 10G BEHRING - AVENTIS [Suspect]
     Indication: MULTIPLE SCLEROSIS
     Dosage: 30G OVER 8 HOURS INTRAVENOUS
     Route: 042
     Dates: start: 20040212, end: 20040219
  3. POLYGAM S/D 10 G BAXTER / AMERICAN RED [Suspect]
     Indication: ASTHENIA
     Dosage: 30G OVER 8 HOURS INTRAVENOUS
     Route: 042
     Dates: start: 20040319, end: 20040320
  4. POLYGAM S/D 10 G BAXTER / AMERICAN RED [Suspect]
     Indication: MULTIPLE SCLEROSIS
     Dosage: 30G OVER 8 HOURS INTRAVENOUS
     Route: 042
     Dates: start: 20040319, end: 20040320

REACTIONS (2)
  - HEPATITIS C [None]
  - INDIRECT INFECTION TRANSMISSION [None]
